FAERS Safety Report 8144926-4 (Version None)
Quarter: 2012Q1

REPORT INFORMATION
  Report Type: 
  Country: None (occurrence: None)
  Receive Date: 20120217
  Receipt Date: 20120209
  Transmission Date: 20120608
  Serious: Yes (Other)
  Sender: FDA-Public Use
  Company Number: TR-ROXANE LABORATORIES, INC.-2012-RO-00630RO

PATIENT
  Age: 79 Year
  Sex: Female

DRUGS (12)
  1. DONEPEZIL HCL [Suspect]
     Indication: FRONTOTEMPORAL DEMENTIA
  2. MEMANTINE [Suspect]
     Indication: FRONTOTEMPORAL DEMENTIA
  3. DONEPEZIL HCL [Suspect]
     Indication: BASAL GANGLION DEGENERATION
     Dosage: 5 MG
  4. WARFARIN SODIUM [Concomitant]
     Dosage: 5 MG
  5. MEMANTINE [Suspect]
     Indication: BASAL GANGLION DEGENERATION
     Dosage: 5 MG
  6. PROPAFENONE HCL [Concomitant]
     Dosage: 300 MG
  7. HYDROCHLOROTHIAZIDE [Concomitant]
     Dosage: 12.5 MG
  8. DONEPEZIL HCL [Suspect]
     Indication: DEMENTIA ALZHEIMER'S TYPE
  9. MEMANTINE [Suspect]
     Indication: DEMENTIA ALZHEIMER'S TYPE
  10. CILAZAPRIL [Concomitant]
     Dosage: 5 MG
  11. LEVOTIROXINE [Concomitant]
     Dosage: 150 MG
  12. ATORVASTATIN [Concomitant]
     Dosage: 10 MG

REACTIONS (3)
  - TRANSAMINASES INCREASED [None]
  - ABASIA [None]
  - SPEECH DISORDER [None]
